FAERS Safety Report 9729761 (Version 1)
Quarter: 2013Q4

REPORT INFORMATION
  Report Type: Spontaneous
  Country: US (occurrence: US)
  Receive Date: 20131204
  Receipt Date: 20131204
  Transmission Date: 20140711
  Serious: No
  Sender: FDA-Public Use
  Company Number: US-GILEAD-2009-0022416

PATIENT
  Age: 64 Year
  Sex: 0

DRUGS (9)
  1. LETAIRIS [Suspect]
     Indication: PULMONARY ARTERIAL HYPERTENSION
     Route: 048
  2. LETAIRIS [Suspect]
     Route: 048
     Dates: start: 20090401
  3. IRON [Concomitant]
  4. FUROSEMIDE [Concomitant]
  5. ATENOLOL [Concomitant]
  6. DETROL [Concomitant]
  7. SPIRONOLACTONE [Concomitant]
  8. LANOXIN [Concomitant]
  9. ADVAIR [Concomitant]

REACTIONS (1)
  - Oedema peripheral [Unknown]
